FAERS Safety Report 6113241-2 (Version None)
Quarter: 2009Q1

REPORT INFORMATION
  Report Type: 
  Country: None (occurrence: None)
  Receive Date: 20090312
  Receipt Date: 20090302
  Transmission Date: 20090719
  Serious: Yes (Hospitalization)
  Sender: FDA-Public Use
  Company Number: ES-ELI_LILLY_AND_COMPANY-ES200903000316

PATIENT
  Age: 65 Year
  Sex: Female

DRUGS (3)
  1. FORTEO [Suspect]
     Indication: OSTEOPOROSIS
     Dosage: 20 UG, UNKNOWN
     Route: 058
     Dates: start: 20090201, end: 20090227
  2. GELOCATIL [Concomitant]
     Indication: PAIN
     Dosage: UNK, UNKNOWN
     Route: 065
  3. NOLOTIL [Concomitant]
     Indication: PAIN
     Dosage: UNK, UNKNOWN
     Route: 065

REACTIONS (2)
  - BACK PAIN [None]
  - NAUSEA [None]
